FAERS Safety Report 5284795-3 (Version None)
Quarter: 2007Q2

REPORT INFORMATION
  Report Type: 
  Country: None (occurrence: None)
  Receive Date: 20070403
  Receipt Date: 20070329
  Transmission Date: 20071010
  Serious: Yes (Death, Other)
  Sender: FDA-Public Use
  Company Number: BR-BRISTOL-MYERS SQUIBB COMPANY-13734736

PATIENT

DRUGS (1)
  1. MAXCEF [Suspect]

REACTIONS (3)
  - DEATH [None]
  - ENCEPHALOPATHY [None]
  - STATUS EPILEPTICUS [None]
